FAERS Safety Report 10845657 (Version 1)
Quarter: 2015Q1

REPORT INFORMATION
  Report Type: Spontaneous
  Country: CL (occurrence: CL)
  Receive Date: 20150220
  Receipt Date: 20150220
  Transmission Date: 20150721
  Serious: Yes (Hospitalization, Other)
  Sender: FDA-Public Use
  Company Number: CL-PFIZER INC-2015017296

PATIENT
  Sex: Female

DRUGS (12)
  1. TRAMADOL [Concomitant]
     Active Substance: TRAMADOL
     Dosage: 100 MG, 1X/DAY
     Route: 042
  2. PREDNISONE. [Concomitant]
     Active Substance: PREDNISONE
     Dosage: 20 MG, 1X/DAY
  3. CLORFENAMINA MALEATO FMNDTRIA [Concomitant]
     Dosage: 4 MG, 2X/DAY
  4. LANZOPRAZOL ALFA [Concomitant]
     Dosage: 30 MG, 2X/DAY
     Route: 042
  5. TIGECYCLINE [Suspect]
     Active Substance: TIGECYCLINE
     Indication: ACINETOBACTER TEST POSITIVE
     Dosage: 100 MG, 2X/DAY
     Route: 042
     Dates: start: 20141204, end: 20141222
  6. PARACETAMOL [Concomitant]
     Active Substance: ACETAMINOPHEN
     Dosage: 3 G, 1X/DAY
  7. ISOSORBIDE [Concomitant]
     Active Substance: ISOSORBIDE
     Dosage: 10 MG, 2X/DAY
  8. METAMIZOLE [Concomitant]
     Active Substance: METAMIZOLE
     Dosage: 4 G, 1X/DAY
     Route: 042
  9. DROPERIDOL. [Concomitant]
     Active Substance: DROPERIDOL
     Dosage: 2.5 MG, 1X/DAY
     Route: 042
  10. AMIODARONE [Concomitant]
     Active Substance: AMIODARONE
     Dosage: 200 MG, 1X/DAY
  11. NITRENDIPINE [Concomitant]
     Active Substance: NITRENDIPINE
     Dosage: 20 MG, 2X/DAY
  12. DALTEPARIN [Concomitant]
     Active Substance: DALTEPARIN
     Dosage: 5000, 1X/DAY
     Route: 058

REACTIONS (3)
  - Sepsis [Recovering/Resolving]
  - Drug ineffective [Recovering/Resolving]
  - Skin infection [Recovering/Resolving]

NARRATIVE: CASE EVENT DATE: 20141224
